FAERS Safety Report 5078203-5 (Version None)
Quarter: 2006Q3

REPORT INFORMATION
  Report Type: 
  Country: None (occurrence: None)
  Receive Date: 20060811
  Receipt Date: 20060601
  Transmission Date: 20061208
  Serious: Yes (Disabling, Other)
  Sender: FDA-Public Use
  Company Number: BE-AMGEN-UK181643

PATIENT
  Sex: Male
  Weight: 76 kg

DRUGS (18)
  1. PALIFERMIN [Suspect]
     Indication: MUCOSAL INFLAMMATION
     Route: 040
     Dates: start: 20050913
  2. MELPHALAN [Concomitant]
     Route: 042
     Dates: start: 20050917, end: 20050917
  3. TROPISETRON [Concomitant]
     Route: 042
     Dates: start: 20050917, end: 20050924
  4. ALIZAPRIDE [Concomitant]
     Route: 042
     Dates: start: 20050917
  5. CLORAZEPATE [Concomitant]
     Route: 042
     Dates: start: 20050917
  6. ENOXAPARIN SODIUM [Concomitant]
     Route: 058
     Dates: start: 20050916, end: 20050926
  7. OFLOXACINE [Concomitant]
     Route: 048
     Dates: start: 20050916, end: 20050928
  8. FLUCONAZOLE [Concomitant]
     Route: 048
     Dates: start: 20050916
  9. ZOLPIDEM TARTRATE [Concomitant]
     Route: 048
     Dates: start: 20050916
  10. POTASSIUM CHLORIDE [Concomitant]
     Route: 042
     Dates: start: 20050919
  11. CALCIUM GLUCONATE [Concomitant]
     Route: 042
     Dates: start: 20050920
  12. RANITIDINE [Concomitant]
     Route: 042
     Dates: start: 20050921
  13. HALOPERIDOL [Concomitant]
     Route: 048
     Dates: start: 20050921
  14. LORAZEPAM [Concomitant]
     Route: 048
     Dates: start: 20050922
  15. NEUPOGEN [Concomitant]
     Route: 042
     Dates: start: 20050922
  16. TRAMADOL HCL [Concomitant]
     Route: 042
     Dates: start: 20050926
  17. TRANEXAMIC ACID [Concomitant]
     Route: 042
  18. ESOMEPRAZOLE MAGNESIUM [Concomitant]
     Route: 042
     Dates: start: 20050927

REACTIONS (4)
  - DERMATITIS EXFOLIATIVE [None]
  - OEDEMA PERIPHERAL [None]
  - PRURITUS [None]
  - TONGUE DISORDER [None]
